FAERS Safety Report 4691490-8 (Version None)
Quarter: 2005Q2

REPORT INFORMATION
  Report Type: 
  Country: None (occurrence: None)
  Receive Date: 20050608
  Receipt Date: 20040429
  Transmission Date: 20051028
  Serious: Yes (Other)
  Sender: FDA-Public Use
  Company Number: 366197

PATIENT
  Sex: Male

DRUGS (1)
  1. ACCUTANE [Suspect]
     Dosage: ORAL
     Route: 048
     Dates: start: 20000615, end: 20000615

REACTIONS (7)
  - APATHY [None]
  - DEPRESSION [None]
  - DRY SKIN [None]
  - KERATOCONJUNCTIVITIS SICCA [None]
  - LIP DRY [None]
  - PHOTOPSIA [None]
  - SOCIAL AVOIDANT BEHAVIOUR [None]
